FAERS Safety Report 4404953-7 (Version None)
Quarter: 2004Q3

REPORT INFORMATION
  Report Type: 
  Country: None (occurrence: None)
  Receive Date: 20040722
  Receipt Date: 20040716
  Transmission Date: 20050211
  Serious: Yes (Hospitalization)
  Sender: FDA-Public Use
  Company Number: GB-MERCK-0407GBR00179

PATIENT
  Age: 90 Year
  Sex: Male

DRUGS (9)
  1. ALFUZOSIN HYDROCHLORIDE [Concomitant]
     Route: 048
  2. AMITRIPTYLINE HYDROCHLORIDE [Concomitant]
     Route: 048
  3. ASPIRIN [Suspect]
     Indication: CEREBROVASCULAR ACCIDENT
     Route: 048
     Dates: end: 20040407
  4. BENDROFLUMETHIAZIDE [Concomitant]
     Route: 048
  5. CLOPIDOGREL BISULFATE [Suspect]
     Indication: CEREBROVASCULAR ACCIDENT
     Route: 048
     Dates: end: 20040702
  6. LACTULOSE [Concomitant]
     Route: 048
  7. VIOXX [Suspect]
     Indication: OSTEOARTHRITIS
     Route: 048
     Dates: end: 20040702
  8. SENNA [Concomitant]
     Route: 048
  9. TRAMADOL HYDROCHLORIDE [Concomitant]
     Route: 048

REACTIONS (4)
  - DUODENAL ULCER [None]
  - HAEMATEMESIS [None]
  - MELAENA [None]
  - OESOPHAGITIS [None]
